FAERS Safety Report 6807712-0 (Version None)
Quarter: 2010Q2

REPORT INFORMATION
  Report Type: 
  Country: None (occurrence: None)
  Receive Date: 20100629
  Receipt Date: 20081223
  Transmission Date: 20101027
  Serious: No
  Sender: FDA-Public Use
  Company Number: US-PFIZER INC-2008086106

PATIENT
  Sex: Female
  Weight: 77.3 kg

DRUGS (2)
  1. ARTHROTEC [Suspect]
     Indication: BONE PAIN
     Dosage: 75 MG, 2X/DAY
     Route: 048
     Dates: start: 20080829
  2. ARTHROTEC [Suspect]
     Indication: OSTEOARTHRITIS

REACTIONS (1)
  - COUGH [None]
